FAERS Safety Report 20376913 (Version 5)
Quarter: 2022Q1

REPORT INFORMATION
  Report Type: Report from Study
  Country: PL (occurrence: PL)
  Receive Date: 20220125
  Receipt Date: 20220329
  Transmission Date: 20220423
  Serious: Yes (Other)
  Sender: FDA-Public Use
  Company Number: PL-BRISTOL-MYERS SQUIBB COMPANY-BMS-2022-009907

PATIENT
  Age: 64 Year
  Sex: Female
  Weight: 70.00 kg

DRUGS (12)
  1. NIVOLUMAB [Suspect]
     Active Substance: NIVOLUMAB
     Indication: Ovarian cancer
     Dosage: 480 MILLIGRAM, Q4WK
     Route: 042
     Dates: start: 20200312, end: 20220121
  2. NIVOLUMAB [Suspect]
     Active Substance: NIVOLUMAB
     Indication: Ovarian cancer
     Dosage: 600 MILLIGRAM, BID
     Route: 048
     Dates: start: 20200213, end: 20220121
  3. NIVOLUMAB [Suspect]
     Active Substance: NIVOLUMAB
     Indication: Ovarian cancer
     Dosage: 480 MILLIGRAM, Q4WK
     Route: 042
     Dates: start: 20200312, end: 20220121
  4. METFORMIN HYDROCHLORIDE [Concomitant]
     Active Substance: METFORMIN HYDROCHLORIDE
     Indication: Product used for unknown indication
     Dosage: UNK
     Route: 065
     Dates: start: 20190222
  5. ESSENTIAL FORTE N [Concomitant]
     Indication: Product used for unknown indication
     Route: 065
  6. ESSENTIAL FORTE N [Concomitant]
     Dosage: UNK
     Route: 065
     Dates: start: 20211216
  7. LIV 52 [ACHILLEA MILLEFOLIUM;AYURVEDIC PREPARATION NOS;CAPPARIS SPINOS [Concomitant]
     Indication: Product used for unknown indication
     Dosage: UNK
     Route: 065
     Dates: start: 20200312
  8. MAGNE B6 [Concomitant]
     Active Substance: MAGNESIUM\PYRIDOXINE
     Indication: Product used for unknown indication
     Dosage: UNK
     Route: 065
     Dates: start: 20200507
  9. RUCAPARIB [Suspect]
     Active Substance: RUCAPARIB
  10. RUCAPARIB [Suspect]
     Active Substance: RUCAPARIB
  11. PLACEBO [Suspect]
     Active Substance: UNSPECIFIED INGREDIENT
  12. PLACEBO [Suspect]
     Active Substance: UNSPECIFIED INGREDIENT

REACTIONS (1)
  - Drug-induced liver injury [Recovering/Resolving]

NARRATIVE: CASE EVENT DATE: 20220113
